FAERS Safety Report 9537290 (Version 2)
Quarter: 2013Q3

REPORT INFORMATION
  Report Type: Report from Study
  Country: US (occurrence: US)
  Receive Date: 20130919
  Receipt Date: 20130919
  Transmission Date: 20140515
  Serious: Yes (Other)
  Sender: FDA-Public Use
  Company Number: PHEH2013US018235

PATIENT
  Age: 53 Year
  Sex: Female
  Weight: 55.79 kg

DRUGS (10)
  1. AFINITOR [Suspect]
     Indication: ANGIOMYOLIPOMA
     Dosage: 5 MG, QD
     Dates: start: 20121128
  2. AFINITOR [Suspect]
     Dosage: 10 MG, QD
     Route: 048
     Dates: start: 20130709, end: 20130820
  3. AFINITOR [Suspect]
     Dosage: 5 MG, QD
     Route: 048
     Dates: start: 20130827
  4. LIPITOR [Suspect]
  5. RISPERDAL [Concomitant]
  6. CALCITROL [Concomitant]
     Dosage: 25 UG, QD
     Route: 048
  7. LAMICTAL [Concomitant]
     Dosage: 150 MG/KG, QD
     Route: 048
     Dates: start: 20121001
  8. SYNTHROID [Concomitant]
     Dosage: 88 UG, QD
     Route: 048
  9. ADDERALL [Concomitant]
     Dates: start: 201206, end: 201208
  10. RITALIN [Concomitant]
     Dosage: 20 MG, TID
     Route: 048
     Dates: start: 20121001

REACTIONS (7)
  - Throat tightness [Recovered/Resolved]
  - Wheezing [Recovered/Resolved]
  - Anxiety [Not Recovered/Not Resolved]
  - Paranoia [Recovering/Resolving]
  - Hypersomnia [Recovering/Resolving]
  - Dyspnoea [Recovered/Resolved]
  - Eye swelling [Not Recovered/Not Resolved]
